FAERS Safety Report 8019454-7 (Version None)
Quarter: 2012Q1

REPORT INFORMATION
  Report Type: 
  Country: None (occurrence: None)
  Receive Date: 20120103
  Receipt Date: 20111228
  Transmission Date: 20120608
  Serious: Yes (Death, Other)
  Sender: FDA-Public Use
  Company Number: PHEH2011US009398

PATIENT
  Sex: Male

DRUGS (12)
  1. ADVAIR DISKUS 100/50 [Concomitant]
     Indication: ASTHMA
  2. SANDOSTATIN LAR [Suspect]
     Indication: METASTATIC CARCINOID TUMOUR
     Dosage: 1 DF, QMO
     Route: 030
  3. CELEXA [Suspect]
     Indication: ARTHRITIS
     Dosage: 20 MG, DAILY
     Route: 048
  4. ALLOPURINOL [Concomitant]
     Indication: GOUT
  5. LISINOPRIL [Concomitant]
     Indication: BLOOD PRESSURE
     Dosage: 40 MG, DAILY
     Route: 048
  6. ANTIHISTAMINES [Concomitant]
  7. PERCOCET-5 [Suspect]
     Indication: NEOPLASM MALIGNANT
     Dosage: 325 MG, UKN
  8. VITAMIN B-12 [Suspect]
     Indication: ANAEMIA VITAMIN B12 DEFICIENCY
     Dosage: 1000 UG, MONTHLY
     Route: 030
  9. SANDOSTATIN LAR [Suspect]
     Dosage: 50 MG, QMO
     Route: 030
  10. XANAX [Suspect]
     Indication: ANXIETY
     Dosage: 0.25 MG, BID
     Route: 048
  11. MS CONTIN [Concomitant]
     Indication: CANCER PAIN
     Dosage: 15 MG, BID
     Route: 048
  12. LOTREL [Concomitant]
     Indication: BLOOD PRESSURE
     Dosage: 5 MG, DAILY
     Route: 048

REACTIONS (4)
  - DEATH [None]
  - NEOPLASM MALIGNANT [None]
  - DIARRHOEA [None]
  - WEIGHT DECREASED [None]
